FAERS Safety Report 11226533 (Version 1)
Quarter: 2015Q2

REPORT INFORMATION
  Report Type: Spontaneous
  Country: ES (occurrence: ES)
  Receive Date: 20150629
  Receipt Date: 20150629
  Transmission Date: 20150821
  Serious: Yes (Other)
  Sender: FDA-Public Use
  Company Number: ES-AMGEN-ESPSP2015050973

PATIENT
  Age: 53 Year
  Sex: Female

DRUGS (6)
  1. EBASTINE [Concomitant]
     Active Substance: EBASTINE
     Indication: HYPERSENSITIVITY
     Dosage: 1 EVERY DAY
  2. FOLIC ACID. [Concomitant]
     Active Substance: FOLIC ACID
     Dosage: 1 EVERY DAY
  3. ENBREL [Suspect]
     Active Substance: ETANERCEPT
     Indication: ANKYLOSING SPONDYLITIS
     Dosage: 50 MG, WEEKLY
     Route: 058
     Dates: start: 20150313
  4. METHOTREXATE [Concomitant]
     Active Substance: METHOTREXATE
     Indication: RHEUMATOID ARTHRITIS
     Dosage: 2 TABLETS, WEEKLY
  5. FLOGOTER [Concomitant]
     Indication: PAIN
     Dosage: EVERY 12 HOURS
  6. ENBREL [Suspect]
     Active Substance: ETANERCEPT
     Dosage: 50 MG, WEEKLY
     Route: 058

REACTIONS (7)
  - Ankylosing spondylitis [Recovering/Resolving]
  - Fatigue [Recovering/Resolving]
  - Contusion [Unknown]
  - Seasonal allergy [Unknown]
  - Increased tendency to bruise [Unknown]
  - Condition aggravated [Recovering/Resolving]
  - Injection site haematoma [Not Recovered/Not Resolved]

NARRATIVE: CASE EVENT DATE: 2015
